FAERS Safety Report 17687604 (Version 1)
Quarter: 2020Q2

REPORT INFORMATION
  Report Type: Spontaneous
  Country: US (occurrence: US)
  Receive Date: 20200421
  Receipt Date: 20200421
  Transmission Date: 20200714
  Serious: No
  Sender: FDA-Public Use
  Company Number: US-BAUSCH-BL-2020-009632

PATIENT
  Age: 54 Year
  Sex: Male
  Weight: 89.89 kg

DRUGS (1)
  1. LACRISERT [Suspect]
     Active Substance: HYDROXYPROPYL CELLULOSE
     Indication: DRY EYE
     Route: 047
     Dates: start: 2018, end: 202003

REACTIONS (4)
  - Visual impairment [Unknown]
  - Therapy interrupted [Unknown]
  - Product supply issue [Unknown]
  - Dry eye [Unknown]

NARRATIVE: CASE EVENT DATE: 202003
